FAERS Safety Report 9675761 (Version 1)
Quarter: 2013Q4

REPORT INFORMATION
  Report Type: Report from Study
  Country: DE (occurrence: DE)
  Receive Date: 20131107
  Receipt Date: 20131107
  Transmission Date: 20140711
  Serious: Yes (Death, Life-Threatening)
  Sender: FDA-Public Use
  Company Number: DE-TEVA-441127ISR

PATIENT
  Age: 73 Year
  Sex: Female
  Weight: 42 kg

DRUGS (1)
  1. FLUDARABIN MEDAC [Suspect]
     Indication: DISEASE PROGRESSION
     Dates: start: 20130121, end: 20130122

REACTIONS (2)
  - Syncope [Fatal]
  - Neutropenic sepsis [Fatal]
